FAERS Safety Report 10793770 (Version 1)
Quarter: 2015Q1

REPORT INFORMATION
  Report Type: Spontaneous
  Country: US (occurrence: US)
  Receive Date: 20150213
  Receipt Date: 20150213
  Transmission Date: 20150721
  Serious: No
  Sender: FDA-Public Use
  Company Number: US-PFIZER INC-2015055670

PATIENT
  Sex: Female

DRUGS (4)
  1. LODINE [Suspect]
     Active Substance: ETODOLAC
     Dosage: UNK
  2. SKELAXIN [Suspect]
     Active Substance: METAXALONE
     Dosage: UNK
  3. METROGEL [Suspect]
     Active Substance: METRONIDAZOLE
     Dosage: UNK
  4. LEVAQUIN [Suspect]
     Active Substance: LEVOFLOXACIN
     Dosage: UNK

REACTIONS (1)
  - Drug hypersensitivity [Unknown]
